FAERS Safety Report 9008789 (Version 1)
Quarter: 2013Q1

REPORT INFORMATION
  Report Type: Spontaneous
  Country: US (occurrence: US)
  Receive Date: 20130111
  Receipt Date: 20130111
  Transmission Date: 20140127
  Serious: Yes (Hospitalization)
  Sender: FDA-Public Use
  Company Number: US-UCBSA-074413

PATIENT
  Age: 33 None
  Sex: Female
  Weight: 68.03 kg

DRUGS (2)
  1. KEPPRA XR [Suspect]
     Dates: start: 2010, end: 201211
  2. KEPPRA XR [Suspect]
     Dates: start: 201211

REACTIONS (4)
  - Status epilepticus [Recovered/Resolved]
  - Apathy [Not Recovered/Not Resolved]
  - Drug dose omission [Unknown]
  - Inappropriate schedule of drug administration [Unknown]
